FAERS Safety Report 6928729-1 (Version None)
Quarter: 2010Q3

REPORT INFORMATION
  Report Type: 
  Country: None (occurrence: None)
  Receive Date: 20100817
  Receipt Date: 20100814
  Transmission Date: 20110219
  Serious: Yes (Hospitalization)
  Sender: FDA-Public Use
  Company Number: D0068553A

PATIENT
  Sex: Male

DRUGS (9)
  1. ROPINIROLE HYDROCHLORIDE [Suspect]
     Dosage: .5MG THREE TIMES PER DAY
     Route: 048
  2. QUILONUM RETARD [Suspect]
     Dosage: 450MG TWICE PER DAY
     Route: 048
  3. MADOPAR [Concomitant]
     Dosage: 125MG THREE TIMES PER DAY
     Route: 065
  4. VENLAFAXINE HCL [Concomitant]
     Dosage: 75MG PER DAY
     Route: 048
  5. LEVOTHYROXINE SODIUM [Concomitant]
     Dosage: 75MG PER DAY
     Route: 065
  6. SERDOLECT [Concomitant]
     Dosage: 4MG TWICE PER DAY
     Route: 065
  7. OMEPRAZOLE [Concomitant]
     Dosage: 20MG PER DAY
     Route: 065
  8. TAMSULOSIN HYDROCHLORIDE [Concomitant]
     Dosage: .4MG PER DAY
     Route: 065
  9. AMITRIPTYLINE HCL [Concomitant]
     Dosage: 25MG PER DAY
     Route: 065

REACTIONS (5)
  - DIARRHOEA [None]
  - FAECAL INCONTINENCE [None]
  - GASTROINTESTINAL SOUNDS ABNORMAL [None]
  - OBSTRUCTION [None]
  - RESIDUAL URINE VOLUME INCREASED [None]
